FAERS Safety Report 9908849 (Version 1)
Quarter: 2014Q1

REPORT INFORMATION
  Report Type: Spontaneous
  Country: US (occurrence: US)
  Receive Date: 20140219
  Receipt Date: 20140219
  Transmission Date: 20141002
  Serious: Yes (Death)
  Sender: FDA-Public Use
  Company Number: US-BANPHARM-20142122

PATIENT
  Age: 49 Year
  Sex: Male

DRUGS (8)
  1. BENZONATATE UNKNOWN PRODUCT [Suspect]
  2. AMLODIPINE [Concomitant]
  3. COCAINE [Concomitant]
  4. TRAZODONE [Concomitant]
  5. RISPERIDONE [Concomitant]
  6. BENZTROPINE [Concomitant]
  7. LISINOPRIL [Concomitant]
  8. CHLORTHALIDONE [Concomitant]

REACTIONS (2)
  - Death [Fatal]
  - Completed suicide [Fatal]
